FAERS Safety Report 7238358-0 (Version None)
Quarter: 2011Q1

REPORT INFORMATION
  Report Type: 
  Country: None (occurrence: None)
  Receive Date: 20110121
  Receipt Date: 20110117
  Transmission Date: 20110831
  Serious: Yes (Other)
  Sender: FDA-Public Use
  Company Number: DE-BRISTOL-MYERS SQUIBB COMPANY-15499270

PATIENT

DRUGS (1)
  1. BLEOMYCIN SULFATE [Suspect]
     Dosage: TOTAL CUMULATIVE DOSE OF 30MG

REACTIONS (1)
  - DERMATITIS [None]
